FAERS Safety Report 16575455 (Version 1)
Quarter: 2019Q3

REPORT INFORMATION
  Report Type: Spontaneous
  Country: US (occurrence: US)
  Receive Date: 20190716
  Receipt Date: 20190716
  Transmission Date: 20191004
  Serious: No
  Sender: FDA-Public Use
  Company Number: US-LUPIN PHARMACEUTICALS INC.-2019-03740

PATIENT
  Sex: Male

DRUGS (2)
  1. LISINOPRIL TABLETS USP, 10MG [Suspect]
     Active Substance: LISINOPRIL
     Indication: BLOOD PRESSURE ABNORMAL
     Dosage: UNK
     Route: 065
  2. LISINOPRIL TABLETS USP, 10MG [Suspect]
     Active Substance: LISINOPRIL
     Dosage: UNK (MULTIPLE TABLETS IN A DAY))
     Route: 065

REACTIONS (4)
  - Blood pressure inadequately controlled [Unknown]
  - Product substitution issue [Unknown]
  - Drug ineffective [Unknown]
  - Extra dose administered [Unknown]
